FAERS Safety Report 5890031-7 (Version None)
Quarter: 2008Q3

REPORT INFORMATION
  Report Type: 
  Country: None (occurrence: None)
  Receive Date: 20080919
  Receipt Date: 20080908
  Transmission Date: 20090109
  Serious: Yes (Other)
  Sender: FDA-Public Use
  Company Number: US-PFIZER INC-2008054882

PATIENT
  Sex: Male
  Weight: 90.909 kg

DRUGS (7)
  1. VIAGRA [Suspect]
     Indication: ERECTILE DYSFUNCTION
  2. LOZOL [Concomitant]
  3. NORVASC [Concomitant]
  4. ZETIA [Concomitant]
  5. LEVOTHYROXINE SODIUM [Concomitant]
  6. FISH OIL [Concomitant]
  7. ASPIRIN [Concomitant]

REACTIONS (1)
  - CARDIAC DISORDER [None]
